FAERS Safety Report 4296224-7 (Version None)
Quarter: 2004Q1

REPORT INFORMATION
  Report Type: 
  Country: None (occurrence: None)
  Receive Date: 20040217
  Receipt Date: 20030919
  Transmission Date: 20041129
  Serious: No
  Sender: FDA-Public Use
  Company Number: US-GLAXOSMITHKLINE-A0426890A

PATIENT
  Sex: Female

DRUGS (4)
  1. LAMICTAL [Suspect]
     Indication: BIPOLAR DISORDER
     Route: 048
     Dates: start: 20030909
  2. ESKALITH [Concomitant]
  3. REMERON [Concomitant]
  4. KLONOPIN [Concomitant]

REACTIONS (2)
  - DYSARTHRIA [None]
  - TONGUE DISORDER [None]
